FAERS Safety Report 18039072 (Version 2)
Quarter: 2025Q2

REPORT INFORMATION
  Report Type: Spontaneous
  Country: NL (occurrence: NL)
  Receive Date: 20200718
  Receipt Date: 20250628
  Transmission Date: 20250717
  Serious: Yes (Death, Hospitalization, Other)
  Sender: AUROBINDO
  Company Number: NL-TEVA-295068ISR

PATIENT
  Age: 67 Year
  Sex: Female

DRUGS (1)
  1. METFORMIN [Suspect]
     Active Substance: METFORMIN HYDROCHLORIDE
     Indication: Type 2 diabetes mellitus
     Route: 065

REACTIONS (3)
  - Lactic acidosis [Fatal]
  - Renal failure [Unknown]
  - Toxicity to various agents [Unknown]
